FAERS Safety Report 7761009 (Version 1)
Quarter: 2020Q3

REPORT INFORMATION
  Report Type: Report from Study
  Country: US (occurrence: US)
  Receive Date: 20110114
  Receipt Date: 20110114
  Transmission Date: 20201105
  Serious: Yes (Death, Hospitalization)
  Sender: FDA-Public Use
  Company Number: US-ROCHE-752476

PATIENT
  Age: 44 Year
  Sex: Female
  Weight: 84.5 kg

DRUGS (1)
  1. IBANDRONIC ACID. [Suspect]
     Active Substance: IBANDRONIC ACID
     Dosage: ROUTE PER PROTOCOL, TAKEN IN MORNING
     Route: 048
     Dates: start: 20090115, end: 20101201

REACTIONS (1)
  - Mastitis [Fatal]

NARRATIVE: CASE EVENT DATE: 20101223
